FAERS Safety Report 5305415-5 (Version None)
Quarter: 2007Q2

REPORT INFORMATION
  Report Type: 
  Country: None (occurrence: None)
  Receive Date: 20070424
  Receipt Date: 20070417
  Transmission Date: 20071010
  Serious: Yes (Death)
  Sender: FDA-Public Use
  Company Number: US-NOVOPROD-262836

PATIENT
  Sex: Male

DRUGS (2)
  1. NOVOSEVEN [Suspect]
     Indication: TRAUMATIC HAEMORRHAGE
     Dosage: UNK, SINGLE
     Route: 042
     Dates: start: 20070301, end: 20070301
  2. NOVOSEVEN [Suspect]
     Dates: start: 20070301, end: 20070301

REACTIONS (1)
  - CONCOMITANT DISEASE PROGRESSION [None]
